FAERS Safety Report 23904686 (Version 1)
Quarter: 2024Q2

REPORT INFORMATION
  Report Type: Spontaneous
  Country: IT (occurrence: IT)
  Receive Date: 20240527
  Receipt Date: 20240527
  Transmission Date: 20240716
  Serious: Yes (Hospitalization)
  Sender: FDA-Public Use
  Company Number: None

PATIENT
  Age: 86 Year
  Sex: Female

DRUGS (6)
  1. MIRTAZAPINE [Suspect]
     Active Substance: MIRTAZAPINE
     Indication: Substance abuse
     Dosage: MIRTAZAPINA 30MG: 7 TABLETS
     Route: 048
     Dates: start: 20240116, end: 20240116
  2. AMLODIPINE\INDAPAMIDE\PERINDOPRIL [Suspect]
     Active Substance: AMLODIPINE\INDAPAMIDE\PERINDOPRIL
     Indication: Substance abuse
     Dosage: TRIPLIAM 5/1.25/5 MG: 7 TABLETS
     Route: 048
     Dates: start: 20240116, end: 20240116
  3. LEVOTHYROXINE SODIUM [Suspect]
     Active Substance: LEVOTHYROXINE SODIUM
     Indication: Substance abuse
     Dosage: EUTIROX 75MCG:7 TABLETS
     Route: 048
     Dates: start: 20240116, end: 20240116
  4. ASPIRIN [Suspect]
     Active Substance: ASPIRIN
     Indication: Substance abuse
     Dosage: ACETYLSALICYLIC ACID 100MG: 7 TABLETS
     Route: 048
     Dates: start: 20240116, end: 20240116
  5. LORAZEPAM [Suspect]
     Active Substance: LORAZEPAM
     Indication: Substance abuse
     Dosage: LORAZEPAM 2.5MG: 7 TABLETS
     Route: 048
     Dates: start: 20240116, end: 20240116
  6. DULOXETINE [Suspect]
     Active Substance: DULOXETINE
     Indication: Substance abuse
     Dosage: DULOXETINA 60MG: 7 TABLETS
     Route: 048
     Dates: start: 20240116, end: 20240116

REACTIONS (2)
  - Substance abuse [Unknown]
  - Psychomotor skills impaired [Unknown]

NARRATIVE: CASE EVENT DATE: 20240116
